FAERS Safety Report 24874764 (Version 1)
Quarter: 2025Q1

REPORT INFORMATION
  Report Type: Report from Study
  Country: CA (occurrence: CA)
  Receive Date: 20250122
  Receipt Date: 20250122
  Transmission Date: 20250409
  Serious: Yes (Other)
  Sender: SANDOZ
  Company Number: CA-002147023-NVSC2023CA007104

PATIENT
  Sex: Male

DRUGS (3)
  1. HYRIMOZ [Suspect]
     Active Substance: ADALIMUMAB-ADAZ
     Indication: Rheumatoid arthritis
     Dosage: 40 MG, Q2W
     Route: 058
     Dates: start: 20220430
  2. METHOTREXATE [Concomitant]
     Active Substance: METHOTREXATE
     Indication: Product used for unknown indication
     Route: 048
  3. OZEMPIC [Concomitant]
     Active Substance: SEMAGLUTIDE
     Indication: Diabetes mellitus
     Route: 065

REACTIONS (9)
  - Testicular disorder [Unknown]
  - Hernia [Unknown]
  - Arthralgia [Recovered/Resolved]
  - General physical health deterioration [Unknown]
  - Gait disturbance [Unknown]
  - Pain in extremity [Recovered/Resolved]
  - Stress [Unknown]
  - Weight decreased [Unknown]
  - Grief reaction [Unknown]
